FAERS Safety Report 21895385 (Version 2)
Quarter: 2023Q2

REPORT INFORMATION
  Report Type: Report from Study
  Country: US (occurrence: US)
  Receive Date: 20230123
  Receipt Date: 20230609
  Transmission Date: 20230722
  Serious: Yes (Other)
  Sender: FDA-Public Use
  Company Number: US-ABBVIE-4277666

PATIENT
  Sex: Female
  Weight: 73 kg

DRUGS (1)
  1. SKYRIZI [Suspect]
     Active Substance: RISANKIZUMAB-RZAA
     Indication: Psoriasis
     Dosage: FORM STRENGTH 150 MG?EVERY 12 WEEKS
     Route: 058
     Dates: start: 2022

REACTIONS (1)
  - Macular degeneration [Unknown]
